FAERS Safety Report 9032201 (Version 1)
Quarter: 2013Q1

REPORT INFORMATION
  Report Type: Report from Study
  Country: GB (occurrence: GB)
  Receive Date: 20130122
  Receipt Date: 20130122
  Transmission Date: 20140127
  Serious: Yes (Other)
  Sender: FDA-Public Use
  Company Number: GB-INCYTE CORPORATION-2013IN000102

PATIENT
  Sex: Male
  Weight: 98 kg

DRUGS (6)
  1. INC424 [Suspect]
     Indication: MYELOFIBROSIS
     Dosage: 20 MG, BID
     Route: 048
     Dates: start: 20120628, end: 20121219
  2. INC424 [Suspect]
     Dosage: UNK
     Route: 048
     Dates: start: 20121221
  3. OMEPRAZOLE [Concomitant]
     Dosage: UNK
  4. IBUPROFEN [Concomitant]
  5. ACICLOVIR [Concomitant]
     Dosage: UNK
     Dates: start: 20121214, end: 20121219
  6. CHLORAMPHENICOL [Concomitant]
     Dosage: UNK
     Dates: start: 20121214, end: 20121219

REACTIONS (1)
  - VIIth nerve paralysis [Recovering/Resolving]
